FAERS Safety Report 6370606-1 (Version None)
Quarter: 2009Q3

REPORT INFORMATION
  Report Type: 
  Country: None (occurrence: None)
  Receive Date: 20090923
  Receipt Date: 20090922
  Transmission Date: 20100115
  Serious: Yes (Other)
  Sender: FDA-Public Use
  Company Number: US-ELI_LILLY_AND_COMPANY-US200909004615

PATIENT
  Sex: Female

DRUGS (2)
  1. HUMULIN 70/30 [Suspect]
     Dosage: UNK, UNK
     Dates: start: 20040101
  2. PLAVIX [Concomitant]
     Dates: end: 20080901

REACTIONS (4)
  - ASTHENIA [None]
  - CEREBROVASCULAR ACCIDENT [None]
  - INJECTION SITE PAIN [None]
  - WRONG TECHNIQUE IN DRUG USAGE PROCESS [None]
